FAERS Safety Report 5079947-1 (Version None)
Quarter: 2006Q3

REPORT INFORMATION
  Report Type: 
  Country: None (occurrence: None)
  Receive Date: 20060809
  Receipt Date: 20060727
  Transmission Date: 20061208
  Serious: Yes (Death)
  Sender: FDA-Public Use
  Company Number: 2006JP002305

PATIENT
  Age: 82 Year
  Sex: Female

DRUGS (5)
  1. PROGRAF [Suspect]
     Indication: RHEUMATOID ARTHRITIS
     Dosage: 2 MG, D, ORAL
     Route: 048
     Dates: start: 20060126
  2. PREDNISOLONE [Concomitant]
  3. CLINORIL [Concomitant]
  4. GEFANIL (GEFARNATE) [Concomitant]
  5. FOSAMAC (ALENDRONATE SODIUM) [Concomitant]

REACTIONS (2)
  - SEPSIS [None]
  - WHITE BLOOD CELL COUNT INCREASED [None]
